FAERS Safety Report 5312585-1 (Version None)
Quarter: 2007Q2

REPORT INFORMATION
  Report Type: 
  Country: None (occurrence: None)
  Receive Date: 20070430
  Receipt Date: 20070314
  Transmission Date: 20071010
  Serious: No
  Sender: FDA-Public Use
  Company Number: 2007UW02848

PATIENT
  Age: 69 Year
  Sex: Female
  Weight: 72.6 kg

DRUGS (4)
  1. NEXIUM [Suspect]
     Indication: GASTROOESOPHAGEAL REFLUX DISEASE
     Route: 048
     Dates: start: 20070209, end: 20070213
  2. COUMADIN [Concomitant]
  3. TOPROL-XL [Concomitant]
     Route: 048
  4. DIGOXIN [Concomitant]

REACTIONS (2)
  - CONJUNCTIVAL HAEMORRHAGE [None]
  - INTERNATIONAL NORMALISED RATIO [None]
